FAERS Safety Report 21021474 (Version 1)
Quarter: 2022Q2

REPORT INFORMATION
  Report Type: Spontaneous
  Country: US (occurrence: US)
  Receive Date: 20220629
  Receipt Date: 20220629
  Transmission Date: 20220720
  Serious: No
  Sender: FDA-Public Use
  Company Number: US-UNITED THERAPEUTICS-UNT-2022-013569

PATIENT
  Sex: Female
  Weight: 54.5 kg

DRUGS (3)
  1. REMODULIN [Suspect]
     Active Substance: TREPROSTINIL
     Indication: Product used for unknown indication
     Dosage: UNK, CONTINUING
     Route: 058
  2. EPOPROSTENOL SODIUM [Suspect]
     Active Substance: EPOPROSTENOL SODIUM
     Indication: Pulmonary hypertension
     Dosage: DAILY DOSE 18288 NG/KG (12.7 NG/KG,1 IN 1 MIN)
     Route: 041
  3. ADCIRCA [Concomitant]
     Active Substance: TADALAFIL
     Indication: Product used for unknown indication
     Dosage: UNK
     Route: 065

REACTIONS (6)
  - Hypotension [Recovering/Resolving]
  - Chest pain [Unknown]
  - Fatigue [Unknown]
  - Lethargy [Unknown]
  - Disturbance in attention [Unknown]
  - Device programming error [Recovered/Resolved]

NARRATIVE: CASE EVENT DATE: 20220101
